FAERS Safety Report 22743560 (Version 3)
Quarter: 2023Q4

REPORT INFORMATION
  Report Type: Report from Study
  Country: US (occurrence: US)
  Receive Date: 20230724
  Receipt Date: 20231108
  Transmission Date: 20240109
  Serious: No
  Sender: FDA-Public Use
  Company Number: US-002147023-NVSC2023US160098

PATIENT
  Age: 81 Year
  Sex: Female

DRUGS (1)
  1. ENTRESTO [Suspect]
     Active Substance: SACUBITRIL\VALSARTAN
     Indication: Cardiac failure chronic
     Dosage: 1 DOSAGE FORM, BID (START DATE: 2023)
     Route: 048

REACTIONS (6)
  - Somnolence [Not Recovered/Not Resolved]
  - Mobility decreased [Recovering/Resolving]
  - Diarrhoea [Recovering/Resolving]
  - Memory impairment [Not Recovered/Not Resolved]
  - Full blood count decreased [Unknown]
  - Asthenia [Not Recovered/Not Resolved]

NARRATIVE: CASE EVENT DATE: 20230701
